FAERS Safety Report 23847326 (Version 1)
Quarter: 2024Q2

REPORT INFORMATION
  Report Type: Spontaneous
  Country: US (occurrence: US)
  Receive Date: 20240513
  Receipt Date: 20240513
  Transmission Date: 20240716
  Serious: Yes (Other)
  Sender: FDA-Public Use
  Company Number: US-JNJFOC-20240513716

PATIENT
  Age: 33 Year
  Sex: Female

DRUGS (1)
  1. NEUTROGENA SPORT FACE OIL FREE SUNSCREEN BROAD SPECTRUM SPF 70 PLUS (A [Suspect]
     Active Substance: AVOBENZONE\HOMOSALATE\OCTISALATE\OCTOCRYLENE
     Indication: Prophylaxis against solar radiation
     Dosage: DIME SIZE
     Route: 061
     Dates: start: 20240427, end: 2024

REACTIONS (1)
  - Chemical burns of eye [Recovering/Resolving]

NARRATIVE: CASE EVENT DATE: 20240427
